FAERS Safety Report 20052335 (Version 2)
Quarter: 2021Q4

REPORT INFORMATION
  Report Type: Spontaneous
  Country: NZ (occurrence: NZ)
  Receive Date: 20211110
  Receipt Date: 20211117
  Transmission Date: 20220303
  Serious: Yes (Other)
  Sender: FDA-Public Use
  Company Number: NZ-BAXTER-2021BAX034874

PATIENT
  Age: 81 Year
  Sex: Male

DRUGS (15)
  1. SODIUM CHLORIDE [Suspect]
     Active Substance: SODIUM CHLORIDE
     Indication: Medication dilution
     Dosage: ROUTE OF ADMINISTRATION: PERIPHERALLY INSERTED CENTRAL CATHETER (PICC)
     Route: 042
     Dates: start: 20211028, end: 20211030
  2. SODIUM CHLORIDE [Suspect]
     Active Substance: SODIUM CHLORIDE
     Dosage: ROUTE OF ADMINISTRATION: PERIPHERALLY INSERTED CENTRAL CATHETER (PICC)
     Route: 042
     Dates: start: 20211028, end: 20211030
  3. SODIUM CHLORIDE [Suspect]
     Active Substance: SODIUM CHLORIDE
     Dosage: ROUTE OF ADMINISTRATION: PERIPHERALLY INSERTED CENTRAL CATHETER (PICC)
     Route: 042
     Dates: start: 20211028, end: 20211030
  4. SODIUM CHLORIDE [Suspect]
     Active Substance: SODIUM CHLORIDE
     Dosage: HALF DOSE
     Route: 065
  5. PENICILLIN G [Suspect]
     Active Substance: PENICILLIN G
     Indication: Product used for unknown indication
     Dosage: INFUSOR LV10?ROUTE OF ADMINISTRATION: PERIPHERALLY INSERTED CENTRAL CATHETER (PICC)?WITH BAXTER INFU
     Route: 042
     Dates: start: 20211028, end: 20211030
  6. PENICILLIN G [Suspect]
     Active Substance: PENICILLIN G
     Dosage: INFUSOR LV10?ROUTE OF ADMINISTRATION: PERIPHERALLY INSERTED CENTRAL CATHETER (PICC)?WITH BAXTER INFU
     Route: 042
     Dates: start: 20211028, end: 20211030
  7. PENICILLIN G [Suspect]
     Active Substance: PENICILLIN G
     Dosage: INFUSOR LV10?ROUTE OF ADMINISTRATION: PERIPHERALLY INSERTED CENTRAL CATHETER (PICC)?WITH BAXTER INFU
     Route: 042
     Dates: start: 20211028, end: 20211030
  8. PENICILLIN G [Suspect]
     Active Substance: PENICILLIN G
     Dosage: HALF DOSE, NON-BAXTER INCREMENTS?ROUTE OF ADMINISTRATION: PERIPHERALLY INSERTED CENTRAL CATHETER (PI
     Route: 042
     Dates: start: 20211030
  9. PENICILLIN G [Suspect]
     Active Substance: PENICILLIN G
     Dosage: ROUTE OF ADMINISTRATION: PERIPHERALLY INSERTED CENTRAL CATHETER (PICC)?NOT BAXTER 4 HOURLY INCREMENT
     Route: 042
     Dates: start: 20211025, end: 20211028
  10. PENICILLIN G [Suspect]
     Active Substance: PENICILLIN G
     Dosage: LOW DOSE OF BENPEN INFUSORS
     Route: 065
     Dates: start: 20211102
  11. PENICILLIN G [Suspect]
     Active Substance: PENICILLIN G
     Dosage: HALF DOSE
     Route: 065
  12. SODIUM CITRATE [Suspect]
     Active Substance: SODIUM CITRATE
     Indication: Product used for unknown indication
     Dosage: ROUTE OF ADMINISTRATION: PERIPHERALLY INSERTED CENTRAL CATHETER (PICC)
     Route: 042
     Dates: start: 20211028, end: 20211030
  13. SODIUM CITRATE [Suspect]
     Active Substance: SODIUM CITRATE
     Dosage: ROUTE OF ADMINISTRATION: PERIPHERALLY INSERTED CENTRAL CATHETER (PICC)
     Route: 042
     Dates: start: 20211028, end: 20211030
  14. SODIUM CITRATE [Suspect]
     Active Substance: SODIUM CITRATE
     Dosage: ROUTE OF ADMINISTRATION: PERIPHERALLY INSERTED CENTRAL CATHETER (PICC)
     Route: 042
     Dates: start: 20211028, end: 20211030
  15. SODIUM CITRATE [Suspect]
     Active Substance: SODIUM CITRATE
     Dosage: HALF DOSE
     Route: 065

REACTIONS (1)
  - Seizure [Recovered/Resolved]

NARRATIVE: CASE EVENT DATE: 20211029
